FAERS Safety Report 17071819 (Version 3)
Quarter: 2019Q4

REPORT INFORMATION
  Report Type: Spontaneous
  Country: JP (occurrence: JP)
  Receive Date: 20191125
  Receipt Date: 20191230
  Transmission Date: 20200122
  Serious: Yes (Other)
  Sender: FDA-Public Use
  Company Number: JP-OTSUKA-2019_039366

PATIENT
  Age: 4 Year
  Sex: Male

DRUGS (5)
  1. MELPHALAN. [Suspect]
     Active Substance: MELPHALAN
     Indication: CORD BLOOD TRANSPLANT THERAPY
  2. FLUDARABINE PHOSPHATE. [Suspect]
     Active Substance: FLUDARABINE PHOSPHATE
     Indication: CORD BLOOD TRANSPLANT THERAPY
     Dosage: UNK
     Route: 065
  3. BUSULFEX [Suspect]
     Active Substance: BUSULFAN
     Indication: AUTOLOGOUS HAEMATOPOIETIC STEM CELL TRANSPLANT
     Dosage: UNK
     Route: 065
  4. ANTITHYMOCYTE IMMUNOGLOBULIN (RABBIT) [Suspect]
     Active Substance: LAPINE T-LYMPHOCYTE IMMUNE GLOBULIN
     Indication: CORD BLOOD TRANSPLANT THERAPY
     Dosage: UNK
     Route: 065
  5. MELPHALAN. [Suspect]
     Active Substance: MELPHALAN
     Indication: AUTOLOGOUS HAEMATOPOIETIC STEM CELL TRANSPLANT
     Dosage: UNK
     Route: 065

REACTIONS (1)
  - Follicular thyroid cancer [Recovered/Resolved]
